FAERS Safety Report 23504337 (Version 2)
Quarter: 2024Q1

REPORT INFORMATION
  Report Type: Report from Study
  Country: BR (occurrence: BR)
  Receive Date: 20240209
  Receipt Date: 20240216
  Transmission Date: 20240409
  Serious: Yes (Other)
  Sender: FDA-Public Use
  Company Number: BR-UCBSA-2024006163

PATIENT
  Age: 47 Year
  Sex: Female
  Weight: 97 kg

DRUGS (2)
  1. CERTOLIZUMAB PEGOL [Suspect]
     Active Substance: CERTOLIZUMAB PEGOL
     Indication: Rheumatoid arthritis
     Dosage: 400 MILLIGRAM, EV 30 DAYS
     Route: 058
     Dates: start: 2018
  2. DULOXETINE HYDROCHLORIDE [Concomitant]
     Active Substance: DULOXETINE HYDROCHLORIDE
     Indication: Fibromyalgia
     Dosage: 60 MILLIGRAM, ONCE DAILY (QD)
     Route: 048
     Dates: start: 2020

REACTIONS (6)
  - Immunodeficiency [Not Recovered/Not Resolved]
  - Asthenia [Not Recovered/Not Resolved]
  - Injection site nodule [Not Recovered/Not Resolved]
  - Injection site bruising [Not Recovered/Not Resolved]
  - Benign neoplasm of thyroid gland [Unknown]
  - Off label use [Unknown]

NARRATIVE: CASE EVENT DATE: 20230901
